FAERS Safety Report 19503117 (Version 2)
Quarter: 2021Q3

REPORT INFORMATION
  Report Type: Spontaneous
  Country: US (occurrence: US)
  Receive Date: 20210708
  Receipt Date: 20210908
  Transmission Date: 20211014
  Serious: Yes (Other)
  Sender: FDA-Public Use
  Company Number: US-BAUSCH-BL-2021-022135

PATIENT
  Age: 39 Year
  Sex: Male

DRUGS (6)
  1. VALACYCLOVIR [Concomitant]
     Active Substance: VALACYCLOVIR HYDROCHLORIDE
     Route: 048
  2. ACYCLOVIR. [Suspect]
     Active Substance: ACYCLOVIR
     Indication: RETINITIS
     Dosage: HIGH DOSE
     Route: 042
  3. ACYCLOVIR. [Suspect]
     Active Substance: ACYCLOVIR
     Indication: PAPILLOEDEMA
  4. VALACYCLOVIR [Concomitant]
     Active Substance: VALACYCLOVIR HYDROCHLORIDE
     Indication: RETINITIS
     Route: 048
  5. ATROPINE. [Concomitant]
     Active Substance: ATROPINE
     Indication: RETINITIS
  6. FOSCARNET [Concomitant]
     Active Substance: FOSCARNET
     Indication: RETINITIS
     Dosage: INTRAVITREAL INJECTION 2.4MG IN 0.1 ML

REACTIONS (1)
  - Acute kidney injury [Unknown]
